FAERS Safety Report 21669501 (Version 1)
Quarter: 2022Q4

REPORT INFORMATION
  Report Type: Other
  Country: US (occurrence: None)
  Receive Date: 20221201
  Receipt Date: 20221201
  Transmission Date: 20230113
  Serious: Yes (Other)
  Sender: FDA-Public Use
  Company Number: US-ROCHE-3228113

PATIENT
  Age: 89 Year
  Sex: Male

DRUGS (1)
  1. ESBRIET [Suspect]
     Active Substance: PIRFENIDONE
     Indication: Pulmonary fibrosis
     Dosage: 3 CAPSULES BY MOUTH 3 TIMES A DAY
     Route: 048

REACTIONS (5)
  - Decreased appetite [Unknown]
  - Weight decreased [Unknown]
  - Abdominal discomfort [Unknown]
  - Pain [Unknown]
  - Gastrointestinal carcinoma [Unknown]
